FAERS Safety Report 12063416 (Version 1)
Quarter: 2016Q1

REPORT INFORMATION
  Report Type: Spontaneous
  Country: US (occurrence: US)
  Receive Date: 20160210
  Receipt Date: 20160210
  Transmission Date: 20160526
  Serious: No
  Sender: FDA-Public Use
  Company Number: US-ALLERGAN-1501973US

PATIENT
  Age: 28 Year
  Sex: Female

DRUGS (3)
  1. BOTOX COSMETIC [Suspect]
     Active Substance: ONABOTULINUMTOXINA
     Dosage: 6 UNITS, SINGLE
     Route: 030
     Dates: start: 201404, end: 201404
  2. BOTOX COSMETIC [Suspect]
     Active Substance: ONABOTULINUMTOXINA
     Indication: SKIN WRINKLING
     Dosage: 6 UNITS, SINGLE
     Route: 030
     Dates: start: 201406, end: 201406
  3. NUVARING [Concomitant]
     Active Substance: ETHINYL ESTRADIOL\ETONOGESTREL
     Dosage: UNK

REACTIONS (9)
  - Deafness [Unknown]
  - Lid sulcus deepened [Unknown]
  - Tinnitus [Unknown]
  - Sjogren^s syndrome [Unknown]
  - Dizziness [Unknown]
  - Periorbital oedema [Unknown]
  - Deafness [Recovered/Resolved]
  - Disturbance in attention [Unknown]
  - Hyperacusis [Unknown]

NARRATIVE: CASE EVENT DATE: 2014
